FAERS Safety Report 4273003-8 (Version None)
Quarter: 2004Q1

REPORT INFORMATION
  Report Type: 
  Country: None (occurrence: None)
  Receive Date: 20040114
  Receipt Date: 20040105
  Transmission Date: 20041129
  Serious: Yes (Hospitalization)
  Sender: FDA-Public Use
  Company Number: 2004193425FR

PATIENT
  Age: 74 Year
  Sex: Male

DRUGS (11)
  1. ALDACTONE [Suspect]
     Dosage: SEE IMAGE
     Route: 048
     Dates: start: 20030905, end: 20031122
  2. ALDACTONE [Suspect]
     Dosage: SEE IMAGE
     Route: 048
     Dates: start: 20031217
  3. RAMIPRIL [Suspect]
     Dosage: SEE IMAGE
     Route: 048
     Dates: end: 20031122
  4. RAMIPRIL [Suspect]
     Dosage: SEE IMAGE
     Route: 048
     Dates: start: 20031101
  5. TENORMIN [Concomitant]
  6. DIAMICRON (GLICLAZIDE) [Concomitant]
  7. LASILIX [Concomitant]
  8. PRAVASTATIN SODIUM [Concomitant]
  9. ISKEDYL (RAUBASINE) [Concomitant]
  10. FORLAX (MACROGOL) [Concomitant]
  11. PREDNISOLONE [Concomitant]

REACTIONS (4)
  - ELECTROCARDIOGRAM PR PROLONGATION [None]
  - HYPERKALAEMIA [None]
  - OEDEMA PERIPHERAL [None]
  - RENAL FAILURE [None]
